FAERS Safety Report 24346796 (Version 1)
Quarter: 2024Q3

REPORT INFORMATION
  Report Type: Spontaneous
  Country: US (occurrence: US)
  Receive Date: 20240921
  Receipt Date: 20240921
  Transmission Date: 20241017
  Serious: No
  Sender: SANOFI AVENTIS
  Company Number: US-SA-2024SA127630

PATIENT
  Sex: Female

DRUGS (3)
  1. DUPIXENT [Suspect]
     Active Substance: DUPILUMAB
     Indication: Asthma
     Dosage: 600 MG, 1X
     Route: 058
     Dates: start: 20231116, end: 20231116
  2. DUPIXENT [Suspect]
     Active Substance: DUPILUMAB
     Dosage: 300 MG, QOW
     Route: 058
     Dates: start: 20231130
  3. CEFDINIR [Suspect]
     Active Substance: CEFDINIR
     Indication: Asthma
     Dosage: UNK
     Dates: start: 20240901

REACTIONS (4)
  - Sleep disorder due to a general medical condition [Unknown]
  - Visual impairment [Unknown]
  - Asthma [Unknown]
  - Dyspnoea [Unknown]
